FAERS Safety Report 23241116 (Version 2)
Quarter: 2023Q4

REPORT INFORMATION
  Report Type: Spontaneous
  Country: CH (occurrence: CH)
  Receive Date: 20231129
  Receipt Date: 20231207
  Transmission Date: 20240110
  Serious: Yes (Hospitalization, Other)
  Sender: FDA-Public Use
  Company Number: CH-MLMSERVICE-20231116-4665546-2

PATIENT
  Age: 7 Decade
  Sex: Female

DRUGS (30)
  1. METHYLPREDNISOLONE [Suspect]
     Active Substance: METHYLPREDNISOLONE
     Dosage: 125 MG
     Dates: start: 202203, end: 202203
  2. PREDNISONE [Suspect]
     Active Substance: PREDNISONE
     Indication: Drug-induced liver injury
     Dosage: 60 MG
     Dates: start: 2022, end: 2022
  3. PREDNISONE [Suspect]
     Active Substance: PREDNISONE
     Indication: Cholestasis
     Dosage: 40 MG
     Dates: start: 2022, end: 2022
  4. PREDNISONE [Suspect]
     Active Substance: PREDNISONE
     Dosage: 20 MG
     Dates: start: 2022, end: 2022
  5. PREDNISONE [Suspect]
     Active Substance: PREDNISONE
     Dosage: 10 MG
     Dates: start: 2022, end: 2022
  6. PREDNISONE [Suspect]
     Active Substance: PREDNISONE
     Dosage: 30 MG
     Dates: start: 2022, end: 2022
  7. PREDNISONE [Suspect]
     Active Substance: PREDNISONE
     Dosage: 10 MG
     Dates: start: 2022, end: 2022
  8. PREDNISONE [Suspect]
     Active Substance: PREDNISONE
     Dosage: 5 MG
     Dates: start: 2022, end: 2022
  9. PREDNISONE [Suspect]
     Active Substance: PREDNISONE
     Dosage: 30 MG
     Dates: start: 2022, end: 2022
  10. PREDNISONE [Suspect]
     Active Substance: PREDNISONE
     Dosage: 5 MG
     Dates: start: 2022, end: 2022
  11. PREDNISONE [Suspect]
     Active Substance: PREDNISONE
     Dosage: 7.5 MG
     Dates: start: 2022, end: 2022
  12. PREDNISONE [Suspect]
     Active Substance: PREDNISONE
     Dosage: 10 MG
     Dates: start: 2022, end: 2022
  13. COBIMETINIB [Concomitant]
     Active Substance: COBIMETINIB
     Indication: Metastases to bone
     Dosage: UNK
     Dates: start: 202207, end: 202208
  14. COBIMETINIB [Concomitant]
     Active Substance: COBIMETINIB
     Indication: Metastases to central nervous system
  15. COBIMETINIB [Concomitant]
     Active Substance: COBIMETINIB
     Indication: Metastases to liver
  16. COBIMETINIB [Concomitant]
     Active Substance: COBIMETINIB
     Indication: Metastases to adrenals
  17. COBIMETINIB [Concomitant]
     Active Substance: COBIMETINIB
     Indication: Metastatic malignant melanoma
  18. COBIMETINIB [Concomitant]
     Active Substance: COBIMETINIB
     Indication: Metastases to lung
  19. ATEZOLIZUMAB [Concomitant]
     Active Substance: ATEZOLIZUMAB
     Indication: Metastatic malignant melanoma
     Dosage: UNK (DOSAGE FORM: INFUSION)
     Dates: start: 202204, end: 202208
  20. ATEZOLIZUMAB [Concomitant]
     Active Substance: ATEZOLIZUMAB
     Indication: Metastases to bone
  21. ATEZOLIZUMAB [Concomitant]
     Active Substance: ATEZOLIZUMAB
     Indication: Metastases to lung
  22. ATEZOLIZUMAB [Concomitant]
     Active Substance: ATEZOLIZUMAB
     Indication: Metastases to adrenals
  23. ATEZOLIZUMAB [Concomitant]
     Active Substance: ATEZOLIZUMAB
     Indication: Metastases to central nervous system
  24. ATEZOLIZUMAB [Concomitant]
     Active Substance: ATEZOLIZUMAB
     Indication: Metastases to liver
  25. VEMURAFENIB [Concomitant]
     Active Substance: VEMURAFENIB
     Indication: Metastatic malignant melanoma
     Dosage: UNK
     Dates: start: 202207, end: 202208
  26. VEMURAFENIB [Concomitant]
     Active Substance: VEMURAFENIB
     Indication: Metastases to lung
  27. VEMURAFENIB [Concomitant]
     Active Substance: VEMURAFENIB
     Indication: Metastases to adrenals
  28. VEMURAFENIB [Concomitant]
     Active Substance: VEMURAFENIB
     Indication: Metastases to liver
  29. VEMURAFENIB [Concomitant]
     Active Substance: VEMURAFENIB
     Indication: Metastases to bone
  30. VEMURAFENIB [Concomitant]
     Active Substance: VEMURAFENIB
     Indication: Metastases to central nervous system

REACTIONS (7)
  - Klebsiella infection [Recovering/Resolving]
  - Liver abscess [Recovered/Resolved]
  - Cholestatic liver injury [Recovering/Resolving]
  - Condition aggravated [Recovering/Resolving]
  - Cholangitis sclerosing [Recovering/Resolving]
  - Bacteraemia [Recovering/Resolving]
  - Enterococcal infection [Recovering/Resolving]

NARRATIVE: CASE EVENT DATE: 20220801
